FAERS Safety Report 9305104 (Version 2)
Quarter: 2013Q2

REPORT INFORMATION
  Report Type: Report from Study
  Country: GB (occurrence: GB)
  Receive Date: 20130523
  Receipt Date: 20130610
  Transmission Date: 20140414
  Serious: Yes (Other)
  Sender: FDA-Public Use
  Company Number: PHHO2013GB006629

PATIENT
  Sex: Female

DRUGS (7)
  1. DICLOFENAC [Suspect]
     Indication: OSTEOARTHRITIS
     Dosage: 50 MG, TID
     Route: 048
     Dates: start: 20110928
  2. AMLODIPINE [Concomitant]
     Indication: HYPERTENSION
     Dosage: 5 MG, QD
     Dates: start: 20090731
  3. ASPIRIN [Concomitant]
     Dosage: 75 MG, QD
     Dates: start: 20111021
  4. BISOPROLOL FUMARATE [Concomitant]
     Dosage: 5 MG, QD
     Dates: start: 20111021
  5. CETIRIZINE HYDROCHLORIDE [Concomitant]
     Dosage: 10 MG, QD
     Dates: start: 20070511
  6. LANSOPRAZOLE [Concomitant]
     Dosage: 30 MG, QD
     Dates: start: 20100331
  7. LOSARTAN POTASSIUM [Concomitant]
     Dosage: 50 MG, QD
     Dates: start: 20061205

REACTIONS (1)
  - Angina pectoris [Recovered/Resolved with Sequelae]
